FAERS Safety Report 5315822-2 (Version None)
Quarter: 2007Q2

REPORT INFORMATION
  Report Type: 
  Country: None (occurrence: None)
  Receive Date: 20070503
  Receipt Date: 20070427
  Transmission Date: 20071010
  Serious: Yes (Hospitalization)
  Sender: FDA-Public Use
  Company Number: FR-GLAXOSMITHKLINE-B0468959A

PATIENT
  Age: 42 Year
  Sex: Female

DRUGS (4)
  1. AUGMENTIN '125' [Suspect]
     Indication: TOOTH DISORDER
     Dosage: 1000MG TWICE PER DAY
     Route: 048
     Dates: start: 20070319
  2. KETOPROFEN [Suspect]
     Indication: TOOTH DISORDER
     Dosage: 300MG PER DAY
     Route: 048
     Dates: start: 20070314, end: 20070318
  3. NIFLURIL [Suspect]
     Indication: TOOTH DISORDER
     Dosage: 2CAP PER DAY
     Route: 048
     Dates: start: 20070319, end: 20070320
  4. ORELOX [Suspect]
     Indication: TOOTH DISORDER
     Dosage: 200MG TWICE PER DAY
     Route: 048
     Dates: start: 20070322, end: 20070323

REACTIONS (8)
  - ABDOMINAL PAIN [None]
  - ABDOMINAL PAIN UPPER [None]
  - GASTRIC ULCER PERFORATION [None]
  - GASTRITIS [None]
  - INFECTION [None]
  - INFLAMMATION [None]
  - INTESTINAL OBSTRUCTION [None]
  - PERITONITIS [None]
